FAERS Safety Report 4288826-9 (Version None)
Quarter: 2004Q1

REPORT INFORMATION
  Report Type: 
  Country: None (occurrence: None)
  Receive Date: 20040205
  Receipt Date: 20040126
  Transmission Date: 20041129
  Serious: Yes (Other)
  Sender: FDA-Public Use
  Company Number: 2004196561CH

PATIENT
  Sex: Male

DRUGS (5)
  1. CELEBREX [Suspect]
     Indication: PAIN
     Dosage: 100-400 MG, QD, ORAL
     Route: 048
     Dates: start: 20040102, end: 20040106
  2. DAFALGAN [Concomitant]
  3. PROSCAR [Concomitant]
  4. DIOVAN [Concomitant]
  5. ZINAT [Concomitant]

REACTIONS (9)
  - CONFUSIONAL STATE [None]
  - DYSPNOEA [None]
  - GENERAL PHYSICAL HEALTH DETERIORATION [None]
  - HYPOVOLAEMIA [None]
  - INAPPROPRIATE ANTIDIURETIC HORMONE SECRETION [None]
  - INFLAMMATION [None]
  - LUNG INFILTRATION [None]
  - PYREXIA [None]
  - TACHYPNOEA [None]
